FAERS Safety Report 7043971-X (Version None)
Quarter: 2010Q4

REPORT INFORMATION
  Report Type: 
  Country: None (occurrence: None)
  Receive Date: 20101012
  Receipt Date: 20101012
  Transmission Date: 20110411
  Serious: Yes (Hospitalization, Other)
  Sender: FDA-Public Use
  Company Number: None

PATIENT
  Age: 46 Year
  Sex: Male
  Weight: 86.1834 kg

DRUGS (1)
  1. CLINDAMYCIN [Suspect]
     Indication: SINUSITIS
     Dosage: 1 CAPSULE 3 X DAILY
     Dates: start: 20100912, end: 20100914

REACTIONS (1)
  - DIARRHOEA [None]
